FAERS Safety Report 5371024-5 (Version None)
Quarter: 2007Q2

REPORT INFORMATION
  Report Type: 
  Country: None (occurrence: None)
  Receive Date: 20070622
  Receipt Date: 20070613
  Transmission Date: 20071010
  Serious: Yes (Hospitalization, Other)
  Sender: FDA-Public Use
  Company Number: 07DE000885

PATIENT
  Age: 33 Year
  Sex: Female
  Weight: 84 kg

DRUGS (1)
  1. LITHIUM CARBONATE [Suspect]
     Indication: DEPRESSION
     Dates: start: 20040701, end: 20060201

REACTIONS (10)
  - DRUG INEFFECTIVE [None]
  - GLUCOSE TOLERANCE IMPAIRED [None]
  - HEPATIC STEATOSIS [None]
  - HYPERCHOLESTEROLAEMIA [None]
  - HYPERLIPIDAEMIA [None]
  - HYPERTRIGLYCERIDAEMIA [None]
  - IMPAIRED FASTING GLUCOSE [None]
  - LIPASE INCREASED [None]
  - MIXED HYPERLIPIDAEMIA [None]
  - WEIGHT DECREASED [None]
